FAERS Safety Report 24215184 (Version 1)
Quarter: 2024Q3

REPORT INFORMATION
  Report Type: Spontaneous
  Country: GB (occurrence: GB)
  Receive Date: 20240816
  Receipt Date: 20240816
  Transmission Date: 20241016
  Serious: Yes (Hospitalization)
  Sender: INVENTIA HEALTHCARE
  Company Number: GB-IHL-000600

PATIENT
  Age: 26 Year
  Sex: Female

DRUGS (1)
  1. VENLAFAXINE HYDROCHLORIDE [Suspect]
     Active Substance: VENLAFAXINE HYDROCHLORIDE
     Indication: Depression
     Route: 065
     Dates: end: 202308

REACTIONS (15)
  - Gastrointestinal disorder [Recovered/Resolved]
  - Condition aggravated [Recovered/Resolved]
  - Early satiety [Recovered/Resolved]
  - Nausea [Recovered/Resolved]
  - Abdominal distension [Recovered/Resolved]
  - Vomiting [Recovered/Resolved]
  - Weight decreased [Recovered/Resolved]
  - Body mass index decreased [Recovered/Resolved]
  - Dizziness [Recovered/Resolved]
  - Antidepressant discontinuation syndrome [Recovered/Resolved]
  - Headache [Recovered/Resolved]
  - Hypoglycaemia [Recovered/Resolved]
  - Malnutrition [Recovered/Resolved]
  - Tinnitus [Recovered/Resolved]
  - Dysphagia [Recovered/Resolved]

NARRATIVE: CASE EVENT DATE: 20230801
